FAERS Safety Report 5756838-1 (Version None)
Quarter: 2008Q2

REPORT INFORMATION
  Report Type: 
  Country: None (occurrence: None)
  Receive Date: 20080529
  Receipt Date: 20080516
  Transmission Date: 20081010
  Serious: Yes (Other)
  Sender: FDA-Public Use
  Company Number: 234314J08USA

PATIENT
  Age: 60 Year
  Sex: Female

DRUGS (11)
  1. REBIF [Suspect]
     Indication: MULTIPLE SCLEROSIS
     Dosage: 44 MCG, 3 IN 1 WEEKS, SUBCUTANEOUS
     Route: 058
     Dates: start: 20061129
  2. ZINC (ZINC) [Concomitant]
  3. FOLIC ACID [Concomitant]
  4. FISH OIL (FISH OIL) [Concomitant]
  5. IRON (IRON) [Concomitant]
  6. CALCIUM (CALCIUM-SANDOZ) [Concomitant]
  7. ADVIL PM (ADVIL) [Concomitant]
  8. PROZAC [Concomitant]
  9. FLOMAX (MORNIFLUMATE) [Concomitant]
  10. VITAMIN D [Concomitant]
  11. COENZYME Q10 [Concomitant]

REACTIONS (2)
  - CONDITION AGGRAVATED [None]
  - MACULOPATHY [None]
